FAERS Safety Report 17112057 (Version 1)
Quarter: 2019Q4

REPORT INFORMATION
  Report Type: Spontaneous
  Country: US (occurrence: US)
  Receive Date: 20191111
  Receipt Date: 20191111
  Transmission Date: 20200122
  Serious: Yes (Hospitalization)
  Sender: FDA-Public Use
  Company Number: None

PATIENT
  Sex: Female

DRUGS (1)
  1. REMICADE [Suspect]
     Active Substance: INFLIXIMAB
     Indication: COLITIS ULCERATIVE
     Dosage: ?          OTHER FREQUENCY:EVERY 8 WEEKS;?
     Route: 042
     Dates: start: 201908

REACTIONS (10)
  - Gastrointestinal bacterial overgrowth [None]
  - Musculoskeletal stiffness [None]
  - Decreased appetite [None]
  - Diarrhoea [None]
  - Abdominal pain [None]
  - Facial paralysis [None]
  - Asthenia [None]
  - Ammonia increased [None]
  - Cerebrovascular accident [None]
  - Balance disorder [None]
